FAERS Safety Report 8014679-9 (Version None)
Quarter: 2011Q4

REPORT INFORMATION
  Report Type: 
  Country: None (occurrence: None)
  Receive Date: 20111229
  Receipt Date: 20111219
  Transmission Date: 20120403
  Serious: Yes (Hospitalization)
  Sender: FDA-Public Use
  Company Number: DE-TEVA-314396GER

PATIENT
  Age: 53 Year
  Sex: Female
  Weight: 61 kg

DRUGS (7)
  1. CIPROFLOXACIN [Concomitant]
     Dosage: 1000 MILLIGRAM;
     Dates: start: 20110830
  2. PANTOPRAZOLE SODIUM [Concomitant]
     Dosage: 20 MILLIGRAM;
     Route: 048
     Dates: start: 20110721
  3. RAMIPRIL [Concomitant]
     Dosage: 2.5 MILLIGRAM;
     Dates: start: 20110721
  4. MYCOPHENOLIC ACID [Suspect]
     Indication: PROPHYLAXIS AGAINST TRANSPLANT REJECTION
     Dosage: 2000 MILLIGRAM;
     Route: 048
     Dates: start: 20110721
  5. PREDNISOLONE [Concomitant]
     Indication: IMMUNOSUPPRESSION
     Dosage: 5 MILLIGRAM;
     Route: 048
     Dates: start: 20110721
  6. ELOBACT [Concomitant]
     Dosage: POSTCOITAL
     Dates: start: 20110721
  7. TACROLIMUS [Concomitant]
     Indication: IMMUNOSUPPRESSION
     Dosage: 3 MILLIGRAM;
     Route: 048
     Dates: start: 20110721

REACTIONS (2)
  - LIPASE INCREASED [None]
  - SUBILEUS [None]
